FAERS Safety Report 7819711-0 (Version None)
Quarter: 2011Q4

REPORT INFORMATION
  Report Type: 
  Country: None (occurrence: None)
  Receive Date: 20111018
  Receipt Date: 20101207
  Transmission Date: 20120403
  Serious: No
  Sender: FDA-Public Use
  Company Number: US-ASTRAZENECA-2010SE58120

PATIENT
  Age: 76 Year
  Sex: Female

DRUGS (1)
  1. SYMBICORT [Suspect]
     Dosage: 160/4.5, 2 PUFFS, BID
     Route: 055
     Dates: start: 20100929

REACTIONS (2)
  - VOCAL CORD DISORDER [None]
  - DYSPHONIA [None]
